FAERS Safety Report 8882489 (Version 1)
Quarter: 2012Q4

REPORT INFORMATION
  Report Type: 
  Country: US (occurrence: US)
  Receive Date: 20121102
  Receipt Date: 20121102
  Transmission Date: 20130627
  Serious: Yes (Other)
  Sender: FDA-Public Use
  Company Number: US-TEVA-2011005747

PATIENT
  Sex: Male

DRUGS (1)
  1. TRISENOX [Suspect]
     Route: 041

REACTIONS (1)
  - Electrocardiogram QT prolonged [Unknown]
